FAERS Safety Report 14912488 (Version 2)
Quarter: 2018Q3

REPORT INFORMATION
  Report Type: Spontaneous
  Country: US (occurrence: US)
  Receive Date: 20180518
  Receipt Date: 20180702
  Transmission Date: 20181010
  Serious: Yes (Other)
  Sender: FDA-Public Use
  Company Number: US-AUROBINDO-AUR-APU-2018-024370

PATIENT
  Sex: Female
  Weight: 72.56 kg

DRUGS (1)
  1. OLMESARTAN MEDOXOMIL 40 MG [Suspect]
     Active Substance: OLMESARTAN MEDOXOMIL
     Indication: BLOOD PRESSURE MEASUREMENT
     Dosage: UNK
     Route: 065
     Dates: start: 20180413

REACTIONS (2)
  - Blood pressure increased [Recovering/Resolving]
  - Eye haemorrhage [Recovering/Resolving]
